FAERS Safety Report 4833151-8 (Version None)
Quarter: 2005Q4

REPORT INFORMATION
  Report Type: 
  Country: None (occurrence: None)
  Receive Date: 20051117
  Receipt Date: 20051104
  Transmission Date: 20060501
  Serious: Yes (Hospitalization, Other)
  Sender: FDA-Public Use
  Company Number: KII-2005-0019414

PATIENT
  Age: 43 Year
  Sex: Male

DRUGS (7)
  1. MORPHINE SULFATE [Suspect]
     Indication: PAIN
     Dosage: INTRAVENOUS
     Route: 042
  2. METHADONE HCL [Suspect]
     Indication: PAIN
     Dosage: ORAL
     Route: 048
  3. GABITRIL [Concomitant]
  4. AMITRIPTYLINE HCL [Concomitant]
  5. DIAZEPAM [Concomitant]
  6. BACLOFEN [Concomitant]
  7. FUROSEMIDE [Concomitant]

REACTIONS (18)
  - AGITATION [None]
  - BLOOD CREATINE INCREASED [None]
  - BLOOD CREATINE PHOSPHOKINASE INCREASED [None]
  - BLOOD CREATINE PHOSPHOKINASE MB INCREASED [None]
  - BLOOD PRESSURE SYSTOLIC INCREASED [None]
  - BLOOD UREA INCREASED [None]
  - CONFUSIONAL STATE [None]
  - DEPRESSED LEVEL OF CONSCIOUSNESS [None]
  - DRUG TOXICITY [None]
  - HAEMODIALYSIS [None]
  - LETHARGY [None]
  - NAUSEA [None]
  - OVERDOSE [None]
  - SHOULDER PAIN [None]
  - SINUS TACHYCARDIA [None]
  - SOMNOLENCE [None]
  - URINE OUTPUT DECREASED [None]
  - WHITE BLOOD CELL COUNT INCREASED [None]
